FAERS Safety Report 16697641 (Version 2)
Quarter: 2020Q1

REPORT INFORMATION
  Report Type: Spontaneous
  Country: PT (occurrence: PT)
  Receive Date: 20190813
  Receipt Date: 20200103
  Transmission Date: 20200409
  Serious: Yes (Hospitalization)
  Sender: FDA-Public Use
  Company Number: PT-BAUSCH-BL-2019-022924

PATIENT
  Age: 49 Year
  Sex: Female

DRUGS (2)
  1. KYNTHEUM [Suspect]
     Active Substance: BRODALUMAB
     Indication: PSORIASIS
     Dosage: 1 INJECTION 2/2 SEMANAS (1 INJECTION 2/2 WEEKS)
     Route: 030
     Dates: start: 20190530
  2. ARCOXIA [Suspect]
     Active Substance: ETORICOXIB
     Indication: ARTHRALGIA
     Dosage: 1 CP/DIA
     Route: 048
     Dates: start: 20190718, end: 20190720

REACTIONS (2)
  - Incorrect route of product administration [Unknown]
  - Skin toxicity [Unknown]

NARRATIVE: CASE EVENT DATE: 20190530
